FAERS Safety Report 7652979-2 (Version None)
Quarter: 2011Q3

REPORT INFORMATION
  Report Type: 
  Country: None (occurrence: None)
  Receive Date: 20110803
  Receipt Date: 20110729
  Transmission Date: 20111222
  Serious: Yes (Other)
  Sender: FDA-Public Use
  Company Number: SE-PFIZER INC-2011175497

PATIENT
  Sex: Male

DRUGS (3)
  1. LYRICA [Suspect]
     Dosage: 150 MG 3-4 TIMES DAILY
     Route: 048
  2. CONCERTA [Concomitant]
     Dosage: UNK
  3. REMERON [Concomitant]
     Dosage: UNK

REACTIONS (1)
  - SENSORY LOSS [None]
